FAERS Safety Report 8056377-1 (Version None)
Quarter: 2012Q1

REPORT INFORMATION
  Report Type: 
  Country: None (occurrence: None)
  Receive Date: 20120119
  Receipt Date: 20120111
  Transmission Date: 20120608
  Serious: Yes (Hospitalization, Other)
  Sender: FDA-Public Use
  Company Number: IL-PFIZER INC-2011194751

PATIENT
  Age: 56 Year
  Sex: Male

DRUGS (8)
  1. LANTUS [Suspect]
     Indication: TYPE 2 DIABETES MELLITUS
     Dosage: 40 IU, UNK
  2. LYRICA [Suspect]
  3. LOPRESSOR [Suspect]
     Dosage: UNK
     Dates: end: 20110609
  4. BLINDED THERAPY [Suspect]
     Indication: TYPE 2 DIABETES MELLITUS
     Dosage: UNK
     Dates: start: 20101208
  5. TEGRETOL [Suspect]
  6. METFORMIN HCL [Suspect]
     Indication: TYPE 2 DIABETES MELLITUS
     Dosage: 2550 MG, UNK
  7. HUMALOG [Suspect]
     Indication: TYPE 2 DIABETES MELLITUS
     Dosage: 60 IU, UNK
  8. AMLODIPINE [Suspect]
     Dosage: UNK
     Dates: end: 20110611

REACTIONS (3)
  - SYNCOPE [None]
  - CHEST PAIN [None]
  - ANGINA UNSTABLE [None]
